FAERS Safety Report 12637414 (Version 1)
Quarter: 2016Q3

REPORT INFORMATION
  Report Type: Spontaneous
  Country: US (occurrence: US)
  Receive Date: 20160809
  Receipt Date: 20160809
  Transmission Date: 20161109
  Serious: No
  Sender: FDA-Public Use
  Company Number: US-BEH-2016061217

PATIENT
  Sex: Female
  Weight: 90 kg

DRUGS (26)
  1. DIPHENHYDRAMINE. [Concomitant]
     Active Substance: DIPHENHYDRAMINE
  2. KEFLEX [Concomitant]
     Active Substance: CEPHALEXIN
  3. QVAR [Concomitant]
     Active Substance: BECLOMETHASONE DIPROPIONATE
  4. HEPARIN [Concomitant]
     Active Substance: HEPARIN SODIUM
  5. LIDOCAINE. [Concomitant]
     Active Substance: LIDOCAINE
  6. CYMBALTA [Concomitant]
     Active Substance: DULOXETINE HYDROCHLORIDE
  7. DIOVAN [Concomitant]
     Active Substance: VALSARTAN
  8. LMX [Concomitant]
     Active Substance: LIDOCAINE
  9. METHOTREXATE. [Concomitant]
     Active Substance: METHOTREXATE
  10. PREDNISONE. [Concomitant]
     Active Substance: PREDNISONE
  11. ALBUTEROL. [Concomitant]
     Active Substance: ALBUTEROL
  12. PRIVIGEN [Suspect]
     Active Substance: HUMAN IMMUNOGLOBULIN G
     Indication: DERMATOMYOSITIS
     Dosage: 2000 MG/KG IV AS DIRECTED
     Route: 042
     Dates: start: 20120109
  13. IRON [Concomitant]
     Active Substance: IRON
  14. TRAMADOL. [Concomitant]
     Active Substance: TRAMADOL
  15. FLEXERIL [Concomitant]
     Active Substance: CYCLOBENZAPRINE HYDROCHLORIDE
  16. FOLIC ACID. [Concomitant]
     Active Substance: FOLIC ACID
  17. NEXIUM [Concomitant]
     Active Substance: ESOMEPRAZOLE MAGNESIUM
  18. SODIUM CHLORIDE. [Concomitant]
     Active Substance: SODIUM CHLORIDE
  19. EPIPEN [Concomitant]
     Active Substance: EPINEPHRINE
  20. AMOXICILLIN AND CLAVULANATE POTASSIUM [Concomitant]
     Active Substance: AMOXICILLIN\CLAVULANATE POTASSIUM
  21. TOPROL XL [Concomitant]
     Active Substance: METOPROLOL SUCCINATE
  22. LEVOTHYROXINE. [Concomitant]
     Active Substance: LEVOTHYROXINE
  23. VITAMIN D [Concomitant]
     Active Substance: CHOLECALCIFEROL
  24. ACETAMINOPHEN. [Concomitant]
     Active Substance: ACETAMINOPHEN
  25. ASPIRIN. [Concomitant]
     Active Substance: ASPIRIN
  26. CALCIUM [Concomitant]
     Active Substance: CALCIUM

REACTIONS (2)
  - Nasopharyngitis [Unknown]
  - Sinusitis [Unknown]
